FAERS Safety Report 7030045-7 (Version None)
Quarter: 2010Q4

REPORT INFORMATION
  Report Type: 
  Country: None (occurrence: None)
  Receive Date: 20101004
  Receipt Date: 20100928
  Transmission Date: 20110411
  Serious: Yes (Hospitalization)
  Sender: FDA-Public Use
  Company Number: 2009EN000310

PATIENT
  Age: 17 Year
  Sex: Male
  Weight: 66.4 kg

DRUGS (12)
  1. ONCASPAR [Suspect]
     Indication: ACUTE LYMPHOCYTIC LEUKAEMIA
     Dosage: 2500 IU*M2;IV ; 4500 IU;X1;IV
     Route: 042
     Dates: start: 20091118, end: 20091118
  2. ONCASPAR [Suspect]
     Indication: ACUTE LYMPHOCYTIC LEUKAEMIA
     Dosage: 2500 IU*M2;IV ; 4500 IU;X1;IV
     Route: 042
     Dates: start: 20090726
  3. METHOTREXATE [Suspect]
     Indication: ACUTE LYMPHOCYTIC LEUKAEMIA
     Dosage: 15 MG;INTH
     Route: 055
     Dates: end: 20091117
  4. VINCRISTINE [Suspect]
     Indication: ACUTE LYMPHOCYTIC LEUKAEMIA
     Dosage: 6 MG;IV
     Route: 042
     Dates: start: 20091117, end: 20091207
  5. BACTRIM [Suspect]
     Indication: PRODUCT USED FOR UNKNOWN INDICATION
  6. METHYLPREDNISOLONE [Suspect]
     Indication: ACUTE LYMPHOCYTIC LEUKAEMIA
  7. CEFEPIME [Suspect]
     Indication: PRODUCT USED FOR UNKNOWN INDICATION
  8. CYTARABINE [Concomitant]
  9. CYCLOPHOSPHAMIDE [Concomitant]
  10. MERCAPTOPURINE [Concomitant]
  11. DAUNORUBICIN HCL [Concomitant]
  12. PREDNISONE [Concomitant]

REACTIONS (9)
  - ABDOMINAL PAIN LOWER [None]
  - BODY TEMPERATURE INCREASED [None]
  - HEADACHE [None]
  - HYPERBILIRUBINAEMIA [None]
  - HYPERGLYCAEMIA [None]
  - INTERNATIONAL NORMALISED RATIO INCREASED [None]
  - PHOTOSENSITIVITY REACTION [None]
  - PROTHROMBIN TIME PROLONGED [None]
  - SCOLIOSIS [None]
